FAERS Safety Report 4297864-1 (Version None)
Quarter: 2004Q1

REPORT INFORMATION
  Report Type: 
  Country: None (occurrence: None)
  Receive Date: 20040213
  Receipt Date: 20040203
  Transmission Date: 20041129
  Serious: Yes (Other)
  Sender: FDA-Public Use
  Company Number: 2004-DE-00537GD

PATIENT
  Sex: 0

DRUGS (1)
  1. CYCLOPHOSPHAMIDE [Suspect]
     Indication: CRYOGLOBULINAEMIA

REACTIONS (1)
  - PNEUMONIA [None]
